FAERS Safety Report 5104449-3 (Version None)
Quarter: 2006Q3

REPORT INFORMATION
  Report Type: 
  Country: None (occurrence: None)
  Receive Date: 20060914
  Receipt Date: 20060906
  Transmission Date: 20061208
  Serious: Yes (Hospitalization)
  Sender: FDA-Public Use
  Company Number: FR-JNJFOC-20060805911

PATIENT
  Age: 66 Year
  Sex: Male

DRUGS (7)
  1. REMICADE [Suspect]
     Route: 042
  2. REMICADE [Suspect]
     Indication: RHEUMATOID ARTHRITIS
     Dosage: SECOND OR THIRD INFUSION IN JUN-2006
     Route: 042
  3. NOVATREX [Concomitant]
     Indication: RHEUMATOID ARTHRITIS
     Route: 065
  4. SPECIAFOLDINE [Concomitant]
     Indication: RHEUMATOID ARTHRITIS
     Route: 065
  5. DEROXAT [Concomitant]
     Indication: DEPRESSION
     Route: 065
  6. LAROXYL [Concomitant]
     Indication: DEPRESSION
     Route: 065
  7. SERESTA [Concomitant]
     Indication: DEPRESSION
     Route: 065

REACTIONS (4)
  - BUTTOCK PAIN [None]
  - HAEMATOMA [None]
  - INFECTION [None]
  - SUBCUTANEOUS ABSCESS [None]
